FAERS Safety Report 7597237-X (Version None)
Quarter: 2011Q3

REPORT INFORMATION
  Report Type: 
  Country: None (occurrence: None)
  Receive Date: 20110708
  Receipt Date: 20101124
  Transmission Date: 20111222
  Serious: No
  Sender: FDA-Public Use
  Company Number: US-GLAXOSMITHKLINE-A0896400A

PATIENT
  Age: 28 Year
  Sex: Female

DRUGS (3)
  1. FLOVENT [Suspect]
     Indication: ASTHMA
     Dosage: 2PUFF TWICE PER DAY
     Route: 055
     Dates: start: 20090101, end: 20100501
  2. ALBUTEROL SULFATE AUTOHALER [Concomitant]
  3. ORAPRED [Suspect]
     Indication: ASTHMA PROPHYLAXIS
     Dosage: 3TSP PER DAY

REACTIONS (5)
  - PANIC ATTACK [None]
  - DYSPNOEA [None]
  - MATERNAL EXPOSURE DURING PREGNANCY [None]
  - EXPOSURE DURING BREAST FEEDING [None]
  - BRONCHITIS [None]
